FAERS Safety Report 5751808-1 (Version None)
Quarter: 2008Q2

REPORT INFORMATION
  Report Type: 
  Country: None (occurrence: None)
  Receive Date: 20080527
  Receipt Date: 20080515
  Transmission Date: 20081010
  Serious: Yes (Hospitalization)
  Sender: FDA-Public Use
  Company Number: 2008BI012646

PATIENT
  Sex: Female

DRUGS (1)
  1. TYSABRI [Suspect]
     Indication: MULTIPLE SCLEROSIS
     Dosage: 300 MG; QM; IV
     Route: 042
     Dates: start: 20071107, end: 20080226

REACTIONS (5)
  - CONDITION AGGRAVATED [None]
  - COORDINATION ABNORMAL [None]
  - HALLUCINATION [None]
  - MULTIPLE SCLEROSIS [None]
  - WOUND [None]
